FAERS Safety Report 8916322 (Version 1)
Quarter: 2012Q4

REPORT INFORMATION
  Report Type: 
  Country: AR (occurrence: AR)
  Receive Date: 20121120
  Receipt Date: 20121120
  Transmission Date: 20130627
  Serious: Yes (Death, Hospitalization)
  Sender: FDA-Public Use
  Company Number: PHHY2012AR105092

PATIENT
  Sex: Male

DRUGS (3)
  1. LAPENAX [Suspect]
     Indication: FRONTOTEMPORAL DEMENTIA
     Dosage: 150 mg, UNK
     Route: 048
     Dates: start: 20050315
  2. CLONAZEPAM [Concomitant]
     Dosage: 2 mg, UNK
  3. VALPROIC ACID [Concomitant]
     Dosage: 500 mg, UNK
     Dates: start: 20050315

REACTIONS (2)
  - Lung disorder [Fatal]
  - Dysphagia [Fatal]
